FAERS Safety Report 4582355-0 (Version None)
Quarter: 2005Q1

REPORT INFORMATION
  Report Type: 
  Country: None (occurrence: None)
  Receive Date: 20050119
  Receipt Date: 20031223
  Transmission Date: 20050727
  Serious: Yes (Other)
  Sender: FDA-Public Use
  Company Number: US-JNJFOC-20030604688

PATIENT
  Age: 61 Year
  Sex: Female
  Weight: 107.9561 kg

DRUGS (4)
  1. DOXIL [Suspect]
     Indication: OVARIAN CANCER
     Dosage: 80 MG ; 40 MG : 1 IN 3 WEEK, INTRAVENOUS
     Route: 042
     Dates: start: 20030101, end: 20030101
  2. DOXIL [Suspect]
     Indication: OVARIAN CANCER
     Dosage: 80 MG ; 40 MG : 1 IN 3 WEEK, INTRAVENOUS
     Route: 042
     Dates: start: 20030422, end: 20030614
  3. ENALAPRIL MALEATE [Concomitant]
  4. ANZEMET  (  ) DOLASETRON MESILATE [Concomitant]

REACTIONS (2)
  - OVARIAN CANCER [None]
  - PALMAR-PLANTAR ERYTHRODYSAESTHESIA SYNDROME [None]
